FAERS Safety Report 14264117 (Version 1)
Quarter: 2017Q4

REPORT INFORMATION
  Report Type: Spontaneous
  Country: US (occurrence: US)
  Receive Date: 20171208
  Receipt Date: 20171208
  Transmission Date: 20180321
  Serious: No
  Sender: FDA-Public Use
  Company Number: US-VIFOR (INTERNATIONAL) INC.-VIT-2016-08497

PATIENT
  Age: 76 Year
  Sex: Female

DRUGS (20)
  1. HYDROXYCARBAMIDE [Concomitant]
     Active Substance: HYDROXYUREA
     Route: 048
     Dates: start: 20151229
  2. GABAPENTIN. [Concomitant]
     Active Substance: GABAPENTIN
     Route: 048
     Dates: start: 20140113
  3. ERGOCALCIFEROL/ASCORBIC ACID/FOLIC ACID/NICOTINAMIDE/PANTHENOL/RETINOL/RIBOFLAVIN/THIAMINE HYDROCHLO [Concomitant]
     Route: 048
     Dates: start: 20120829
  4. NOVOLOG [Concomitant]
     Active Substance: INSULIN ASPART
     Dates: start: 20151229
  5. MELATONIN [Concomitant]
     Active Substance: MELATONIN
  6. NOVOLIN [Concomitant]
     Active Substance: INSULIN HUMAN
  7. VELTASSA [Suspect]
     Active Substance: PATIROMER
     Indication: HYPERKALAEMIA
     Route: 048
     Dates: start: 20161026, end: 20161114
  8. VELTASSA [Suspect]
     Active Substance: PATIROMER
     Route: 048
     Dates: start: 20170802
  9. AMITRIPTYLINE HYDROCHLORIDE. [Concomitant]
     Active Substance: AMITRIPTYLINE HYDROCHLORIDE
     Route: 048
     Dates: start: 20151229
  10. CO-ENZYME [Concomitant]
  11. SIMVASTATIN. [Concomitant]
     Active Substance: SIMVASTATIN
     Route: 048
     Dates: start: 20151229
  12. LUTEIN [Concomitant]
     Active Substance: LUTEIN
     Dates: start: 20140819
  13. METOPROLOL SUCCINATE. [Concomitant]
     Active Substance: METOPROLOL SUCCINATE
     Route: 048
     Dates: start: 20151229
  14. FUROSEMIDE. [Concomitant]
     Active Substance: FUROSEMIDE
     Indication: OEDEMA
     Route: 048
     Dates: start: 20140509
  15. REQUIP [Concomitant]
     Active Substance: ROPINIROLE HYDROCHLORIDE
     Route: 048
     Dates: start: 20140509
  16. LEVEMIR [Concomitant]
     Active Substance: INSULIN DETEMIR
     Dates: start: 20151229
  17. BACLOFEN. [Concomitant]
     Active Substance: BACLOFEN
  18. PHYTOMENADIONE [Concomitant]
     Active Substance: PHYTONADIONE
     Route: 048
     Dates: start: 20140819
  19. COLECALCIFEROL [Concomitant]
     Active Substance: CHOLECALCIFEROL
     Route: 048
     Dates: start: 20140819
  20. LEVOTHYROXINE SODIUM. [Concomitant]
     Active Substance: LEVOTHYROXINE SODIUM
     Route: 048
     Dates: start: 20160222

REACTIONS (2)
  - Muscle spasms [Recovered/Resolved]
  - Constipation [Not Recovered/Not Resolved]

NARRATIVE: CASE EVENT DATE: 20161113
